FAERS Safety Report 19501380 (Version 1)
Quarter: 2021Q3

REPORT INFORMATION
  Report Type: Spontaneous
  Country: PL (occurrence: PL)
  Receive Date: 20210707
  Receipt Date: 20210707
  Transmission Date: 20211014
  Serious: Yes (Hospitalization)
  Sender: FDA-Public Use
  Company Number: PL-TEVA-2021-PL-1929857

PATIENT
  Sex: Female

DRUGS (3)
  1. LACOSAMIDE. [Interacting]
     Active Substance: LACOSAMIDE
     Dosage: 200 MILLIGRAM DAILY;
     Route: 065
     Dates: start: 2016
  2. LAMOTRIGINE. [Suspect]
     Active Substance: LAMOTRIGINE
     Dosage: 250 MILLIGRAM DAILY;
     Route: 065
     Dates: start: 2017
  3. VALPROIC ACID. [Interacting]
     Active Substance: VALPROIC ACID
     Dosage: 1500 MILLIGRAM DAILY;
     Route: 065

REACTIONS (6)
  - Therapeutic product effect incomplete [Unknown]
  - Tremor [Recovering/Resolving]
  - Drug interaction [Recovering/Resolving]
  - Balance disorder [Recovering/Resolving]
  - Cerebellar syndrome [Recovering/Resolving]
  - Head titubation [Recovering/Resolving]

NARRATIVE: CASE EVENT DATE: 202007
